FAERS Safety Report 8789288 (Version 1)
Quarter: 2012Q4

REPORT INFORMATION
  Report Type: Spontaneous
  Country: US (occurrence: None)
  Receive Date: 20120904
  Receipt Date: 20120904
  Transmission Date: 20130627
  Serious: Yes (Other)
  Sender: FDA-Public Use
  Company Number: B0826580A

PATIENT
  Age: 56 Year
  Sex: Male

DRUGS (4)
  1. MELPHALAN [Suspect]
     Indication: MULTIPLE MYELOMA
  2. DEXAMETHASON [Suspect]
     Indication: MULTIPLE MYELOMA
  3. THALIDOMIDE [Suspect]
     Indication: MULTIPLE MYELOMA
  4. RADIOTHERAPY [Suspect]

REACTIONS (6)
  - Strongyloidiasis [None]
  - Muscular weakness [None]
  - Gastrointestinal disorder [None]
  - Sepsis [None]
  - Radiation injury [None]
  - Computerised tomogram thorax abnormal [None]
